FAERS Safety Report 19495526 (Version 1)
Quarter: 2021Q3

REPORT INFORMATION
  Report Type: Spontaneous
  Country: IT (occurrence: IT)
  Receive Date: 20210706
  Receipt Date: 20210706
  Transmission Date: 20211014
  Serious: Yes (Other)
  Sender: FDA-Public Use
  Company Number: IT-AMGEN-ITANI2021102425

PATIENT

DRUGS (26)
  1. PERTUZUMAB. [Suspect]
     Active Substance: PERTUZUMAB
     Indication: HER2 POSITIVE BREAST CANCER
     Dosage: 840 MILLIGRAM, Q3WK (UNIT=NOT AVAILABLE)
     Route: 042
     Dates: start: 20190314, end: 20190314
  2. PACLITAXEL. [Suspect]
     Active Substance: PACLITAXEL
     Indication: HER2 POSITIVE BREAST CANCER
     Dosage: DATE OF MOST RECENT DOSE RECEIVED PRIOR TO THE EVENT ONSET: 17/JUN/2019
     Route: 042
     Dates: start: 20190314, end: 20190610
  3. IVABRADINE [Suspect]
     Active Substance: IVABRADINE
     Dosage: UNK MILLIGRAM/SQ. METER (UNIT=NOT AVAILABLE)
     Route: 042
     Dates: start: 20201215
  4. IVABRADINE [Concomitant]
     Active Substance: IVABRADINE
     Indication: PRODUCT USED FOR UNKNOWN INDICATION
     Dosage: UNK
     Dates: start: 20151118
  5. TRASTUZUMAB. [Suspect]
     Active Substance: TRASTUZUMAB
     Dosage: UNK
     Route: 042
  6. PERTUZUMAB. [Suspect]
     Active Substance: PERTUZUMAB
     Dosage: 840 MG, EVERY 3 WEEKS; DATE OF MOST RECENT DOSE RECEIVED PRIOR TO THE EVENT ONSET: 08/APR/2019
     Route: 042
     Dates: start: 20190314, end: 20190314
  7. IVABRADINE [Suspect]
     Active Substance: IVABRADINE
     Dosage: 130 MG (UNIT=NOT AVAILABLE)
     Route: 042
     Dates: start: 20190314, end: 20190610
  8. DIBASE [Concomitant]
     Active Substance: CHOLECALCIFEROL
     Indication: PRODUCT USED FOR UNKNOWN INDICATION
     Dosage: UNK
     Route: 065
  9. BISOPROLOL [Concomitant]
     Active Substance: BISOPROLOL
     Dosage: UNK
     Dates: start: 20151118
  10. IVABRADINE [Suspect]
     Active Substance: IVABRADINE
     Indication: PRODUCT USED FOR UNKNOWN INDICATION
     Dosage: 3.6 MICROGRAM/KILOGRAM, Q3WK (UNIT=NOT AVAILABLE)
     Route: 042
     Dates: start: 20200506, end: 20201104
  11. VINORELBINE TARTRATE. [Suspect]
     Active Substance: VINORELBINE TARTRATE
     Indication: HER2 POSITIVE BREAST CANCER
     Dosage: UNK MILLIGRAM/SQ. METER (UNIT=NOT AVAILABLE)
     Route: 065
     Dates: start: 20201215
  12. EXEMESTANE. [Suspect]
     Active Substance: EXEMESTANE
     Dosage: 25 MILLIGRAM, QD (UNIT=NOT AVAILABLE)
     Route: 048
     Dates: start: 20190819, end: 20200422
  13. IVABRADINE [Suspect]
     Active Substance: IVABRADINE
     Dosage: 840 MILLIGRAM, Q3WK (UNIT=NOT AVAILABLE)
     Route: 042
     Dates: start: 20190314, end: 20190314
  14. BISOPROLOL [Concomitant]
     Active Substance: BISOPROLOL
     Dosage: UNK
     Dates: start: 20200709
  15. TRASTUZUMAB EMTANSINE [Suspect]
     Active Substance: ADO-TRASTUZUMAB EMTANSINE
     Indication: HER2 POSITIVE BREAST CANCER
     Dosage: 3.6 UG/KG, EVERY 3 WEEKS; DATE OF MOST RECENT DOSE RECEIVED PRIOR TO THE EVENT ONSET: 04/NOV/2020
     Route: 042
     Dates: start: 20200506, end: 20201104
  16. TRASTUZUMAB EMTANSINE [Suspect]
     Active Substance: ADO-TRASTUZUMAB EMTANSINE
     Dosage: 3.6 MICROGRAM/KILOGRAM, Q3WK (UNIT=NOT AVAILABLE)
     Route: 042
     Dates: start: 20200506, end: 20201104
  17. PACLITAXEL. [Suspect]
     Active Substance: PACLITAXEL
     Dosage: 130 MG (UNIT=NOT AVAILABLE)
     Route: 042
     Dates: start: 20190314, end: 20190610
  18. IVABRADINE [Suspect]
     Active Substance: IVABRADINE
     Dosage: UNK (UNIT=NOT AVAILABLE)
     Route: 065
     Dates: start: 20151118
  19. EXEMESTANE. [Suspect]
     Active Substance: EXEMESTANE
     Indication: HER2 POSITIVE BREAST CANCER
     Dosage: 25 MG, QD; DATE OF MOST RECENT DOSE OF EXEMESTANE RECEIVED PRIOR TO THE EVENT ONSET: 22/APR/2020
     Route: 048
     Dates: start: 20190819, end: 20200422
  20. QUETIAPINE. [Concomitant]
     Active Substance: QUETIAPINE
     Dosage: UNK
  21. URSODEOXYCHOLIC ACID [Concomitant]
     Active Substance: URSODIOL
     Indication: PRODUCT USED FOR UNKNOWN INDICATION
     Dosage: UNK
     Dates: start: 20200709
  22. VINORELBINE [Concomitant]
     Active Substance: VINORELBINE TARTRATE
     Indication: HER2 POSITIVE BREAST CANCER
     Dosage: 25 MG/M2
     Route: 042
     Dates: start: 20201215
  23. TRASTUZUMAB. [Suspect]
     Active Substance: TRASTUZUMAB
     Indication: HER2 POSITIVE BREAST CANCER
     Dosage: 2 UG/KG; DATE OF MOST RECENT DOSE RECEIVED PRIOR TO THE EVENT ONSET: 15/DEC/2020
     Route: 042
     Dates: start: 20201215, end: 20210107
  24. IVABRADINE [Suspect]
     Active Substance: IVABRADINE
     Dosage: 25 MILLIGRAM, QD (UNIT=NOT AVAILABLE)
     Route: 048
     Dates: start: 20190819, end: 20200422
  25. EXEMESTANE. [Suspect]
     Active Substance: EXEMESTANE
     Dosage: 25 MILLIGRAM, QD
     Route: 048
     Dates: start: 20190819, end: 20200422
  26. QUETIAPINE FUMARATE. [Concomitant]
     Active Substance: QUETIAPINE FUMARATE
     Indication: PRODUCT USED FOR UNKNOWN INDICATION
     Dosage: UNK

REACTIONS (3)
  - Underdose [Unknown]
  - Neutropenia [Recovering/Resolving]
  - Off label use [Recovered/Resolved]

NARRATIVE: CASE EVENT DATE: 2020
